FAERS Safety Report 25829354 (Version 1)
Quarter: 2025Q3

REPORT INFORMATION
  Report Type: Spontaneous
  Country: US (occurrence: US)
  Receive Date: 20250922
  Receipt Date: 20250922
  Transmission Date: 20251020
  Serious: No
  Sender: APOTEX
  Company Number: US-APOTEX-2025AP030283

PATIENT
  Age: 14 Year
  Sex: Male

DRUGS (11)
  1. LEVETIRACETAM [Suspect]
     Active Substance: LEVETIRACETAM
     Indication: Upper motor neurone lesion
     Dosage: UNK, BID
     Route: 065
  2. LEVETIRACETAM [Suspect]
     Active Substance: LEVETIRACETAM
     Indication: Clonus
     Route: 065
  3. LEVETIRACETAM [Suspect]
     Active Substance: LEVETIRACETAM
     Indication: Hyperreflexia
  4. LEVETIRACETAM [Suspect]
     Active Substance: LEVETIRACETAM
     Indication: Seizure
  5. ALBUTEROL [Concomitant]
     Active Substance: ALBUTEROL
     Indication: Asthma
     Route: 065
  6. MONTELUKAST [Concomitant]
     Active Substance: MONTELUKAST
     Indication: Seasonal allergy
     Route: 065
  7. ACETAMINOPHEN [Concomitant]
     Active Substance: ACETAMINOPHEN
     Indication: Headache
     Route: 065
  8. NIMODIPINE [Concomitant]
     Active Substance: NIMODIPINE
     Indication: Thunderclap headache
     Dosage: 60 MILLIGRAM, Q.6H
     Route: 065
  9. NIMODIPINE [Concomitant]
     Active Substance: NIMODIPINE
     Indication: Hypertension
     Dosage: 30 MILLIGRAM, Q.6H
     Route: 065
  10. MAGNESIUM [Concomitant]
     Active Substance: MAGNESIUM
     Indication: Supplementation therapy
     Route: 065
  11. POLYETHYLENE GLYCOLS [Concomitant]
     Active Substance: POLYETHYLENE GLYCOLS
     Indication: Constipation
     Dosage: UNK, QD
     Route: 065

REACTIONS (2)
  - Mental status changes [Recovered/Resolved]
  - Confusional state [Recovered/Resolved]
